FAERS Safety Report 9933466 (Version 3)
Quarter: 2014Q1

REPORT INFORMATION
  Report Type: Spontaneous
  Country: IT (occurrence: None)
  Receive Date: 20140226
  Receipt Date: 20140324
  Transmission Date: 20141002
  Serious: Yes (Other)
  Sender: FDA-Public Use
  Company Number: AUR-APL-2014-02012

PATIENT
  Age: 71 Year
  Sex: Male

DRUGS (3)
  1. FINASTERIDE [Suspect]
     Indication: PRODUCT USED FOR UNKNOWN INDICATION
     Dosage: 15 DOSAGE FORMS,TOTAL,OAL
     Route: 048
     Dates: start: 20131221, end: 20131221
  2. METFORMIN [Suspect]
     Indication: PRODUCT USED FOR UNKNOWN INDICATION
     Dosage: (2000 MG, TOTAL), ORAL
     Route: 048
     Dates: start: 20131221, end: 20131221
  3. SAMYR [Suspect]
     Indication: PRODUCT USED FOR UNKNOWN INDICATION
     Route: 048
     Dates: start: 20131221, end: 20131221

REACTIONS (2)
  - Drug abuse [None]
  - Agitation [None]
